FAERS Safety Report 5145277-2 (Version None)
Quarter: 2006Q4

REPORT INFORMATION
  Report Type: 
  Country: None (occurrence: None)
  Receive Date: 20061107
  Receipt Date: 20061026
  Transmission Date: 20070319
  Serious: Yes (Other)
  Sender: FDA-Public Use
  Company Number: US-ELI_LILLY_AND_COMPANY-US200611000599

PATIENT
  Age: 43 Year
  Sex: Male

DRUGS (3)
  1. ILETIN [Suspect]
     Dosage: UNK, UNKNOWN
  2. HUMAN INSULIN (RDNA ORIGIN) [Suspect]
     Dosage: UNK, UNKNOWN
  3. INSULIN ^NORDISK^ [Concomitant]
     Dosage: UNK, UNKNOWN

REACTIONS (1)
  - BLINDNESS [None]
